FAERS Safety Report 4853525-9 (Version None)
Quarter: 2005Q4

REPORT INFORMATION
  Report Type: 
  Country: None (occurrence: None)
  Receive Date: 20051212
  Receipt Date: 20051121
  Transmission Date: 20060501
  Serious: Yes (Other)
  Sender: FDA-Public Use
  Company Number: US_020483183

PATIENT
  Age: 54 Year
  Sex: Male

DRUGS (4)
  1. ZYPREXA [Suspect]
     Dosage: 25 MG, DAILY (1/D), ORAL
     Route: 048
     Dates: start: 20010626, end: 20020207
  2. NORVASC [Concomitant]
  3. NOVAROK (IMIDAPRIL HYDROCHLORIDE) [Concomitant]
  4. SHIOMARIN (LATAMOXEF) [Concomitant]

REACTIONS (2)
  - HYPOTHERMIA [None]
  - PRESCRIBED OVERDOSE [None]
